FAERS Safety Report 24079631 (Version 1)
Quarter: 2024Q3

REPORT INFORMATION
  Report Type: Spontaneous
  Country: GR (occurrence: GR)
  Receive Date: 20240711
  Receipt Date: 20240711
  Transmission Date: 20241017
  Serious: Yes (Death, Hospitalization)
  Sender: NOVARTIS
  Company Number: GR-002147023-NVSC2024GR142720

PATIENT
  Sex: Female

DRUGS (1)
  1. LEQVIO [Suspect]
     Active Substance: INCLISIRAN SODIUM
     Indication: Product used for unknown indication
     Dosage: UNK (284/1.5 MILLIGRAM PER MILLILITRE)
     Route: 065
     Dates: start: 20240408, end: 20240408

REACTIONS (1)
  - Acute pulmonary oedema [Fatal]
